FAERS Safety Report 8124150-1 (Version None)
Quarter: 2012Q1

REPORT INFORMATION
  Report Type: 
  Country: None (occurrence: None)
  Receive Date: 20120209
  Receipt Date: 20120208
  Transmission Date: 20120608
  Serious: No
  Sender: FDA-Public Use
  Company Number: US-PFIZER INC-2012034916

PATIENT
  Sex: Female
  Weight: 83.9 kg

DRUGS (3)
  1. ACTONEL [Concomitant]
     Dosage: UNK
  2. ALISKIREN [Concomitant]
     Indication: HYPERTENSION
     Dosage: UNK
  3. CELEBREX [Suspect]
     Indication: ARTHRITIS
     Dosage: 200 MG, 1X/DAY
     Route: 048
     Dates: start: 20110801

REACTIONS (1)
  - ALOPECIA [None]
